FAERS Safety Report 18628343 (Version 3)
Quarter: 2021Q1

REPORT INFORMATION
  Report Type: Spontaneous
  Country: US (occurrence: US)
  Receive Date: 20201217
  Receipt Date: 20210325
  Transmission Date: 20210419
  Serious: Yes (Disabling)
  Sender: FDA-Public Use
  Company Number: US-TEVA-2020-US-1857983

PATIENT
  Age: 65 Year
  Sex: Female
  Weight: 68.03 kg

DRUGS (3)
  1. DOCETAXEL ACCORD [Suspect]
     Active Substance: DOCETAXEL
     Indication: BREAST CANCER FEMALE
     Dosage: DOSAGE: 130MG, NUMBER OF CYCLES: 06, FREQUENCY: EVERY THREE WEEKS
     Route: 065
     Dates: start: 20150522, end: 20150924
  2. TRASTUZUMAB. [Concomitant]
     Active Substance: TRASTUZUMAB
     Indication: BREAST CANCER FEMALE
     Dosage: DOSAGE: 130MG, NUMBER OF CYCLES: 06, FREQUENCY: EVERY THREE WEEKS
     Route: 065
     Dates: start: 20150522, end: 20150924
  3. PERTUZUMAB. [Concomitant]
     Active Substance: PERTUZUMAB
     Indication: BREAST CANCER FEMALE
     Dosage: DOSAGE: 130MG, NUMBER OF CYCLES: 06, FREQUENCY: EVERY THREE WEEKS
     Route: 065
     Dates: start: 20150522, end: 20150924

REACTIONS (4)
  - Hair texture abnormal [Not Recovered/Not Resolved]
  - Madarosis [Not Recovered/Not Resolved]
  - Hair colour changes [Not Recovered/Not Resolved]
  - Alopecia areata [Not Recovered/Not Resolved]

NARRATIVE: CASE EVENT DATE: 2016
